FAERS Safety Report 9410071 (Version 1)
Quarter: 2013Q2

REPORT INFORMATION
  Report Type: Spontaneous
  Country: US (occurrence: None)
  Receive Date: 20130419
  Receipt Date: 20130419
  Transmission Date: 20140414
  Serious: Yes (Life-Threatening, Hospitalization)
  Sender: FDA-Public Use
  Company Number: RAE110910TG001

PATIENT
  Age: 9 Month
  Sex: Male

DRUGS (1)
  1. HYLAND^S TEETHING TABLETS [Suspect]
     Indication: TEETHING
     Dosage: 2 TABS 2-3X DAY

REACTIONS (2)
  - Convulsion [None]
  - Apnoea [None]
